FAERS Safety Report 8946957 (Version 2)
Quarter: 2013Q1

REPORT INFORMATION
  Report Type: Spontaneous
  Country: US (occurrence: US)
  Receive Date: 20121205
  Receipt Date: 20130114
  Transmission Date: 20140127
  Serious: Yes (Other)
  Sender: FDA-Public Use
  Company Number: US-PFIZER INC-2012300996

PATIENT
  Age: 54 Year
  Sex: Female
  Weight: 64.39 kg

DRUGS (4)
  1. LEVOXYL [Suspect]
     Indication: HYPOTHYROIDISM
     Dosage: 88 UG, 1X/DAY
     Route: 048
  2. GABAPENTIN [Suspect]
     Dosage: 600 MG, 5X/DAY
     Route: 048
  3. FLEXERIL [Concomitant]
     Dosage: UNK
  4. TRAMADOL [Concomitant]
     Dosage: UNK

REACTIONS (1)
  - Convulsion [Not Recovered/Not Resolved]
